FAERS Safety Report 6425690-3 (Version None)
Quarter: 2009Q4

REPORT INFORMATION
  Report Type: 
  Country: None (occurrence: None)
  Receive Date: 20091103
  Receipt Date: 20091021
  Transmission Date: 20100525
  Serious: Yes (Hospitalization)
  Sender: FDA-Public Use
  Company Number: PHHY2009SE45353

PATIENT
  Sex: Female

DRUGS (1)
  1. DIOVAN [Suspect]
     Indication: HYPERTENSION
     Dosage: HALF TABLET IN THE MORNING AND ONE HALF TABLET IN THE EVENING
     Dates: start: 20090501

REACTIONS (8)
  - ARTHRALGIA [None]
  - CENTRAL NERVOUS SYSTEM VIRAL INFECTION [None]
  - CONTUSION [None]
  - DIZZINESS [None]
  - JOINT STIFFNESS [None]
  - MYALGIA [None]
  - PRURITUS [None]
  - WRONG TECHNIQUE IN DRUG USAGE PROCESS [None]
